FAERS Safety Report 4849977-0 (Version None)
Quarter: 2005Q4

REPORT INFORMATION
  Report Type: 
  Country: None (occurrence: None)
  Receive Date: 20051123
  Receipt Date: 20050215
  Transmission Date: 20060501
  Serious: Yes (Other)
  Sender: FDA-Public Use
  Company Number: 2005030697

PATIENT
  Age: 35 Year
  Sex: Male
  Weight: 58.9676 kg

DRUGS (3)
  1. LIPITOR [Suspect]
     Indication: BLOOD CHOLESTEROL INCREASED
     Dosage: 15 MG (10 MG, 1 + 1/2 TABS
     Dates: start: 20050201, end: 20050201
  2. ZOLPIDEM TARTRATE [Concomitant]
  3. DIAZEPAM [Concomitant]

REACTIONS (5)
  - BACK PAIN [None]
  - BLOOD CHOLESTEROL INCREASED [None]
  - CHEST PAIN [None]
  - DYSPNOEA [None]
  - INSOMNIA [None]
